FAERS Safety Report 18416261 (Version 1)
Quarter: 2020Q4

REPORT INFORMATION
  Report Type: Spontaneous
  Country: RU (occurrence: RU)
  Receive Date: 20201022
  Receipt Date: 20201022
  Transmission Date: 20210114
  Serious: Yes (Other)
  Sender: FDA-Public Use
  Company Number: RU-ASTRAZENECA-2020SF33358

PATIENT

DRUGS (1)
  1. PULMICORT TURBUHALER [Suspect]
     Active Substance: BUDESONIDE
     Route: 055

REACTIONS (8)
  - Oxygen saturation decreased [Unknown]
  - Condition aggravated [Unknown]
  - Pharyngeal erythema [Unknown]
  - Pyrexia [Unknown]
  - General physical health deterioration [Unknown]
  - Wheezing [Unknown]
  - Rhinitis [Unknown]
  - Dyspnoea [Unknown]
